FAERS Safety Report 9222715 (Version 2)
Quarter: 2013Q2

REPORT INFORMATION
  Report Type: Spontaneous
  Country: US (occurrence: US)
  Receive Date: 20130410
  Receipt Date: 20130508
  Transmission Date: 20140414
  Serious: Yes (Hospitalization, Other)
  Sender: FDA-Public Use
  Company Number: US-PFIZER INC-2012281363

PATIENT
  Age: 76 Year
  Sex: Female
  Weight: 51.7 kg

DRUGS (3)
  1. REVATIO [Suspect]
     Indication: LUNG DISORDER
     Dosage: 20 MG, 3X/DAY
  2. CLORAZ DIPOT [Concomitant]
     Indication: HYPERTENSION
     Dosage: 15 MG, UNK
  3. BUSPIRONE [Concomitant]
     Indication: HYPERTENSION
     Dosage: 15 MG, UNK

REACTIONS (1)
  - Pneumonia [Unknown]
